FAERS Safety Report 9459943 (Version 2)
Quarter: 2013Q3

REPORT INFORMATION
  Report Type: Spontaneous
  Country: US (occurrence: US)
  Receive Date: 20130815
  Receipt Date: 20130920
  Transmission Date: 20140515
  Serious: No
  Sender: FDA-Public Use
  Company Number: US-PFIZER INC-2013235913

PATIENT
  Age: 59 Year
  Sex: Female
  Weight: 72.56 kg

DRUGS (5)
  1. LYRICA [Suspect]
     Indication: NEURALGIA
     Dosage: 75 MG, 2X/DAY
     Route: 048
     Dates: start: 2012
  2. LYRICA [Suspect]
     Dosage: 75 MG, 3X/DAY
     Route: 048
  3. FUROSEMIDE [Concomitant]
     Dosage: 20 MG, 1X/DAY
  4. FLUOXETINE [Concomitant]
     Dosage: 40 MG, 1X/DAY
  5. ADVIL [Concomitant]
     Indication: INFLAMMATION
     Dosage: UNK

REACTIONS (3)
  - Arthritis [Unknown]
  - Pollakiuria [Unknown]
  - Local swelling [Unknown]
